FAERS Safety Report 7554045-3 (Version None)
Quarter: 2011Q2

REPORT INFORMATION
  Report Type: 
  Country: None (occurrence: None)
  Receive Date: 20110610
  Receipt Date: 20110531
  Transmission Date: 20111010
  Serious: Yes (Hospitalization)
  Sender: FDA-Public Use
  Company Number: 2011-1708

PATIENT
  Age: 18 Year
  Sex: Male
  Weight: 57.2 kg

DRUGS (4)
  1. INCRELEX [Suspect]
     Indication: BODY HEIGHT BELOW NORMAL
     Dosage: 5 MG (5 MG, 1 IN 1 D), SUBCUTANEOUS
     Route: 058
     Dates: start: 20101221, end: 20110520
  2. LANTUS [Concomitant]
  3. BD INSULIN (INSULIN) [Concomitant]
  4. HUMALOG [Concomitant]

REACTIONS (6)
  - HEPATOMEGALY [None]
  - HEPATITIS [None]
  - BLOOD CHOLESTEROL INCREASED [None]
  - GROWTH RETARDATION [None]
  - HEPATOTOXICITY [None]
  - DIABETES MELLITUS INADEQUATE CONTROL [None]
